FAERS Safety Report 8518563-3 (Version None)
Quarter: 2012Q3

REPORT INFORMATION
  Report Type: 
  Country: None (occurrence: None)
  Receive Date: 20120718
  Receipt Date: 20120518
  Transmission Date: 20120928
  Serious: No
  Sender: FDA-Public Use
  Company Number: US-BRISTOL-MYERS SQUIBB COMPANY-16603698

PATIENT
  Age: 70 Year
  Sex: Female

DRUGS (2)
  1. COUMADIN [Suspect]
     Dosage: 1DF=4MG MON/WED/FRI,2MG ALL OTHER DAYS
     Dates: start: 20090101
  2. NIACIN [Suspect]
     Dosage: 1DF=50,000 UNITS NOS.VITAMIN B3
     Dates: start: 20120201

REACTIONS (1)
  - INTERNATIONAL NORMALISED RATIO FLUCTUATION [None]
